FAERS Safety Report 18109769 (Version 3)
Quarter: 2021Q4

REPORT INFORMATION
  Report Type: Spontaneous
  Country: US (occurrence: US)
  Receive Date: 20200804
  Receipt Date: 20211001
  Transmission Date: 20220303
  Serious: Yes (Hospitalization, Other)
  Sender: FDA-Public Use
  Company Number: US-PURDUE-USA-2020-0159424

PATIENT
  Sex: Male

DRUGS (8)
  1. OXYCONTIN [Suspect]
     Active Substance: OXYCODONE HYDROCHLORIDE
     Indication: Product used for unknown indication
     Dosage: UNKNOWN
     Route: 048
  2. HYDROCODONE BITARTRATE [Suspect]
     Active Substance: HYDROCODONE BITARTRATE
     Indication: Spinal cord injury
     Dosage: TAKING 5T TO 6 TIMES A DAY
     Route: 048
     Dates: start: 1984, end: 1996
  3. VICODIN [Suspect]
     Active Substance: ACETAMINOPHEN\HYDROCODONE BITARTRATE
     Indication: Spinal cord injury
     Dosage: TAKING 5T TO 6 TIMES A DAY
     Route: 048
     Dates: start: 1984, end: 1996
  4. SOMA [Suspect]
     Active Substance: CARISOPRODOL
     Indication: Spinal cord injury
     Dosage: TAKING 5T TO 6 TIMES A DAY
     Route: 048
     Dates: start: 1984, end: 1996
  5. METHADONE [Suspect]
     Active Substance: METHADONE HYDROCHLORIDE
     Indication: Spinal cord injury
     Dosage: TAKING 5T TO 6 TIMES A DAY
     Route: 065
     Dates: start: 1984, end: 1996
  6. VALIUM [Suspect]
     Active Substance: DIAZEPAM
     Indication: Spinal cord injury
     Dosage: TAKING 5T TO 6 TIMES A DAY
     Route: 048
     Dates: start: 1984, end: 1996
  7. ROXICODONE [Suspect]
     Active Substance: OXYCODONE HYDROCHLORIDE
     Indication: Product used for unknown indication
     Dosage: UNKNOWN
     Route: 065
  8. PHENOBARBITAL [Suspect]
     Active Substance: PHENOBARBITAL
     Indication: Product used for unknown indication
     Dosage: UNKNOWN
     Route: 065

REACTIONS (4)
  - Hospitalisation [Unknown]
  - Drug dependence [Unknown]
  - General physical health deterioration [Unknown]
  - Mental impairment [Unknown]

NARRATIVE: CASE EVENT DATE: 19840101
